FAERS Safety Report 18705031 (Version 1)
Quarter: 2021Q1

REPORT INFORMATION
  Report Type: Spontaneous
  Country: US (occurrence: US)
  Receive Date: 20210105
  Receipt Date: 20210105
  Transmission Date: 20210419
  Serious: Yes (Death, Hospitalization)
  Sender: FDA-Public Use
  Company Number: US-ALVOGEN-2021-ALVOGEN-115757

PATIENT
  Age: 58 Year
  Sex: Male

DRUGS (5)
  1. AMLODIPINE [Suspect]
     Active Substance: AMLODIPINE BESYLATE
     Indication: DRUG ABUSE
     Dosage: ROUTE OF ADMINISTRATION: INGST
  2. METFORMIN [Suspect]
     Active Substance: METFORMIN HYDROCHLORIDE
     Indication: DRUG ABUSE
     Dosage: ROUTE OF ADMINISTRATION: INGST
  3. LISINOPRIL. [Suspect]
     Active Substance: LISINOPRIL
     Indication: DRUG ABUSE
     Dosage: ROUTE OF ADMINISTRATION: INGST
  4. FINASTERIDE. [Suspect]
     Active Substance: FINASTERIDE
     Indication: DRUG ABUSE
     Dosage: ROUTE OF ADMINISTRATION: INGST
  5. ALCOHOL. [Suspect]
     Active Substance: ALCOHOL
     Indication: DRUG ABUSE
     Dosage: ROUTE OF ADMINISTRATION: INGST

REACTIONS (1)
  - Drug abuse [Fatal]
